FAERS Safety Report 6334737-4 (Version None)
Quarter: 2009Q3

REPORT INFORMATION
  Report Type: 
  Country: None (occurrence: None)
  Receive Date: 20090831
  Receipt Date: 20090819
  Transmission Date: 20100115
  Serious: Yes (Other)
  Sender: FDA-Public Use
  Company Number: DE-PFIZER INC-2009256770

PATIENT
  Age: 21 Year

DRUGS (3)
  1. LYRICA [Suspect]
     Dosage: 75 MG, 2X/DAY
     Dates: start: 20090501
  2. TRAMAL [Concomitant]
     Dosage: UNK
  3. NOVALGIN [Concomitant]
     Dosage: UNK

REACTIONS (1)
  - ACUTE HEPATIC FAILURE [None]
